FAERS Safety Report 11406394 (Version 2)
Quarter: 2015Q3

REPORT INFORMATION
  Report Type: Spontaneous
  Country: JP (occurrence: JP)
  Receive Date: 20150821
  Receipt Date: 20150911
  Transmission Date: 20151125
  Serious: Yes (Hospitalization, Other)
  Sender: FDA-Public Use
  Company Number: JP-BRISTOL-MYERS SQUIBB COMPANY-BMS-2015-037497

PATIENT
  Age: 78 Year
  Sex: Female
  Weight: 37 kg

DRUGS (4)
  1. RIMATIL [Concomitant]
     Active Substance: BUCILLAMINE
     Indication: RHEUMATOID ARTHRITIS
     Dosage: 100 MG, QD
     Route: 065
     Dates: start: 200909
  2. SUNVEPRA [Suspect]
     Active Substance: ASUNAPREVIR
     Indication: CHRONIC HEPATITIS C
     Dosage: 100 MG, BID
     Route: 048
     Dates: start: 20150515
  3. MUCOSTA [Concomitant]
     Active Substance: REBAMIPIDE
     Indication: RHEUMATOID ARTHRITIS
     Dosage: 100 MG, TID
     Route: 065
     Dates: start: 201311
  4. DAKLINZA [Suspect]
     Active Substance: DACLATASVIR
     Indication: CHRONIC HEPATITIS C
     Dosage: 60 MG, QD
     Route: 048
     Dates: start: 20150515

REACTIONS (3)
  - Hepatic enzyme increased [Unknown]
  - Duodenitis [Recovered/Resolved]
  - Bronchitis [Recovered/Resolved]

NARRATIVE: CASE EVENT DATE: 20150525
